FAERS Safety Report 7804776-2 (Version None)
Quarter: 2011Q4

REPORT INFORMATION
  Report Type: 
  Country: None (occurrence: None)
  Receive Date: 20111010
  Receipt Date: 20111005
  Transmission Date: 20120403
  Serious: Yes (Death)
  Sender: FDA-Public Use
  Company Number: US-CELGENEUS-163-21880-11093177

PATIENT
  Sex: Female
  Weight: 59.928 kg

DRUGS (10)
  1. ENTEGRA PLUS [Concomitant]
     Indication: SUPPLEMENTATION THERAPY
     Dosage: 1 TABLET
     Route: 048
     Dates: end: 20110901
  2. NASCOBAL [Concomitant]
     Dosage: 1 SPRAY
     Route: 065
  3. NEXIUM [Concomitant]
     Dosage: 40 MILLIGRAM
     Route: 048
  4. REVLIMID [Suspect]
     Dosage: 10 MILLIGRAM
     Route: 048
     Dates: start: 20110414, end: 20110919
  5. CALCIUM CARBONATE [Concomitant]
     Indication: SUPPLEMENTATION THERAPY
     Dosage: 500 MILLIGRAM
     Route: 048
     Dates: end: 20110901
  6. FENOFIBRATE [Concomitant]
     Dosage: 160 MILLIGRAM
     Route: 048
  7. REVLIMID [Suspect]
     Indication: MULTIPLE MYELOMA
     Dosage: 25 MILLIGRAM
     Route: 048
     Dates: start: 20081101
  8. DEXAMETHASONE [Concomitant]
     Dosage: 20 MILLIGRAM
     Route: 048
     Dates: end: 20110901
  9. LOPERAMIDE HCL [Concomitant]
     Dosage: 2 MILLIGRAM
     Route: 048
  10. MEGACE [Concomitant]
     Dosage: 5 MILLILITER
     Route: 048

REACTIONS (1)
  - MULTIPLE MYELOMA [None]
